FAERS Safety Report 8074291-2 (Version None)
Quarter: 2012Q1

REPORT INFORMATION
  Report Type: 
  Country: None (occurrence: None)
  Receive Date: 20120120
  Receipt Date: 20120110
  Transmission Date: 20120608
  Serious: Yes (Life-Threatening, Hospitalization, Other)
  Sender: FDA-Public Use
  Company Number: AUR-APL-2012-00527

PATIENT
  Age: 44 Year
  Sex: Male

DRUGS (13)
  1. METOPROLOL TARTRATE [Suspect]
     Indication: PRODUCT USED FOR UNKNOWN INDICATION
  2. SAXAGLIPTIN (SAXAGLIPTIN) [Suspect]
     Indication: TYPE 2 DIABETES MELLITUS
     Dosage: 40 IU
     Dates: start: 20110202, end: 20110517
  3. ASPIRIN [Concomitant]
  4. ANGIOTENSIN CONVERTING ENZYME [Concomitant]
  5. LANTUS [Suspect]
     Indication: DIABETES MELLITUS
     Dosage: 40 IU
  6. BETA BLOCKER (BETA BLOCKING AGENTS) [Concomitant]
  7. VERAPAMIL HYDROCHLORIDE [Suspect]
     Indication: PRODUCT USED FOR UNKNOWN INDICATION
  8. ALDOSTERONE INHIBITOR (ALDOSTERONE ANTAGONISTS) [Concomitant]
  9. DIOVAN [Suspect]
     Indication: PRODUCT USED FOR UNKNOWN INDICATION
  10. ANTI-COAGULANT (ANTICOAGULANT SODIUM CITRATE) [Concomitant]
  11. EZETIMIBE [Concomitant]
  12. PLACEBO [Suspect]
     Indication: TYPE 2 DIABETES MELLITUS
     Dates: start: 20110202, end: 20110517
  13. LASIX [Suspect]
     Indication: PRODUCT USED FOR UNKNOWN INDICATION

REACTIONS (6)
  - ASTHENIA [None]
  - RENAL FAILURE ACUTE [None]
  - EJECTION FRACTION DECREASED [None]
  - HYPERKALAEMIA [None]
  - BRADYCARDIA [None]
  - HYPOXIA [None]
